FAERS Safety Report 12927944 (Version 2)
Quarter: 2016Q4

REPORT INFORMATION
  Report Type: Report from Study
  Country: BE (occurrence: BE)
  Receive Date: 20161110
  Receipt Date: 20161111
  Transmission Date: 20170207
  Serious: Yes (Other)
  Sender: FDA-Public Use
  Company Number: PHHY2016BE152242

PATIENT
  Age: 41 Year
  Sex: Male

DRUGS (1)
  1. LDK378 [Suspect]
     Active Substance: CERITINIB
     Indication: NON-SMALL CELL LUNG CANCER
     Dosage: 750 OT, QD
     Route: 065
     Dates: start: 20160525, end: 201610

REACTIONS (6)
  - Non-small cell lung cancer [Unknown]
  - General physical health deterioration [Unknown]
  - Vomiting [Unknown]
  - Malignant neoplasm progression [Unknown]
  - Metastases to central nervous system [Unknown]
  - Diarrhoea [Unknown]

NARRATIVE: CASE EVENT DATE: 201610
